FAERS Safety Report 19392907 (Version 3)
Quarter: 2022Q4

REPORT INFORMATION
  Report Type: Spontaneous
  Country: FR (occurrence: FR)
  Receive Date: 20210609
  Receipt Date: 20221224
  Transmission Date: 20230113
  Serious: Yes (Disabling)
  Sender: FDA-Public Use
  Company Number: FR-SA-SAC20210414000044

PATIENT
  Age: 20 Year
  Sex: Female
  Weight: 46 kg

DRUGS (10)
  1. PANTOPRAZOLE [Suspect]
     Active Substance: PANTOPRAZOLE
     Indication: Abdominal pain upper
     Dosage: 1/DAY 3 TO 5 DAYS
     Route: 048
     Dates: start: 200211
  2. PANTOPRAZOLE [Suspect]
     Active Substance: PANTOPRAZOLE
     Dosage: 1 DOSAGE FORM, ONCE A DAY(1 DF, QD 3 TO 5 DAYS)
     Route: 048
     Dates: start: 200211
  3. PIROXICAM BETADEX [Suspect]
     Active Substance: PIROXICAM BETADEX
     Indication: Pain
     Dosage: 1/DAY 3 TO 5 DAYS
     Route: 048
     Dates: start: 202011
  4. PIROXICAM BETADEX [Suspect]
     Active Substance: PIROXICAM BETADEX
     Dosage: 1 DOSAGE FORM, ONCE A DAY(1 DF, QD 3 TO 5 DAYS)
     Route: 048
     Dates: start: 202011
  5. KEVZARA [Suspect]
     Active Substance: SARILUMAB
     Indication: Rheumatoid arthritis
     Dosage: 200 MILLIGRAM 2 WEEK
     Route: 065
     Dates: start: 20210308
  6. ETHINYL ESTRADIOL\LEVONORGESTREL [Suspect]
     Active Substance: ETHINYL ESTRADIOL\LEVONORGESTREL
     Indication: Contraception
     Dosage: UNK UNK, ONCE A DAY
     Route: 048
     Dates: start: 201810
  7. ETHINYL ESTRADIOL\LEVONORGESTREL [Suspect]
     Active Substance: ETHINYL ESTRADIOL\LEVONORGESTREL
     Dosage: 1 DOSAGE FORM, ONCE A DAY
     Route: 048
     Dates: start: 201810
  8. EBASTINE [Concomitant]
     Active Substance: EBASTINE
     Indication: Product used for unknown indication
     Dosage: UNK
     Route: 065
  9. EBASTINE;PHENYLEPHRINE HYDROCHLORIDE [Concomitant]
     Indication: Product used for unknown indication
     Dosage: UNK
     Route: 065
  10. Solupred [Concomitant]
     Indication: Product used for unknown indication
     Dosage: UNK
     Route: 065

REACTIONS (8)
  - Mobility decreased [Recovered/Resolved]
  - Injection site erythema [Unknown]
  - Aphthous ulcer [Not Recovered/Not Resolved]
  - Pain in extremity [Recovered/Resolved]
  - Injection site swelling [Recovered/Resolved]
  - Mouth ulceration [Not Recovered/Not Resolved]
  - Injection site oedema [Recovered/Resolved]
  - Off label use [Unknown]
